FAERS Safety Report 8491523-7 (Version None)
Quarter: 2012Q3

REPORT INFORMATION
  Report Type: 
  Country: None (occurrence: None)
  Receive Date: 20120706
  Receipt Date: 20120627
  Transmission Date: 20120928
  Serious: Yes (Other)
  Sender: FDA-Public Use
  Company Number: GB-ASTRAZENECA-2012SE43524

PATIENT
  Age: 47 Year
  Sex: Female

DRUGS (6)
  1. PAPAVERETUM [Concomitant]
     Indication: PREMEDICATION
     Route: 030
  2. OXYGEN [Concomitant]
     Indication: GENERAL ANAESTHESIA
  3. HYOSCINE HBR HYT [Concomitant]
     Indication: PREMEDICATION
     Route: 030
  4. NITROUS OXYGEN [Concomitant]
     Indication: GENERAL ANAESTHESIA
  5. XYLOCAINE [Suspect]
     Indication: ANALGESIC THERAPY
     Route: 008
  6. THIOPENTAL SODIUM [Concomitant]
     Indication: GENERAL ANAESTHESIA

REACTIONS (1)
  - PARAPLEGIA [None]
